FAERS Safety Report 26071060 (Version 2)
Quarter: 2025Q4

REPORT INFORMATION
  Report Type: Spontaneous
  Country: US (occurrence: US)
  Receive Date: 20251120
  Receipt Date: 20251209
  Transmission Date: 20260117
  Serious: No
  Sender: CSL BEHRING
  Company Number: US-BEH-2025224071

PATIENT
  Age: 53 Year
  Sex: Male

DRUGS (1)
  1. HEMGENIX [Suspect]
     Active Substance: ETRANACOGENE DEZAPARVOVEC
     Dosage: UNK
     Route: 065
     Dates: start: 20251015

REACTIONS (6)
  - Fatigue [Unknown]
  - Headache [Recovered/Resolved]
  - Gait disturbance [Recovered/Resolved]
  - Limb injury [Recovered/Resolved]
  - Discomfort [Recovered/Resolved]
  - Contusion [Recovered/Resolved]

NARRATIVE: CASE EVENT DATE: 20251001
